APPROVED DRUG PRODUCT: URSODIOL
Active Ingredient: URSODIOL
Strength: 250MG
Dosage Form/Route: TABLET;ORAL
Application: A211145 | Product #001 | TE Code: AB
Applicant: ZYDUS LIFESCIENCES GLOBAL FZE
Approved: Oct 30, 2018 | RLD: No | RS: No | Type: RX